FAERS Safety Report 24844640 (Version 1)
Quarter: 2025Q1

REPORT INFORMATION
  Report Type: Spontaneous
  Country: US (occurrence: None)
  Receive Date: 20250115
  Receipt Date: 20250115
  Transmission Date: 20250409
  Serious: Yes (Hospitalization)
  Sender: FDA-CTU
  Company Number: None

PATIENT
  Age: 76 Year
  Sex: Female
  Weight: 54.5 kg

DRUGS (2)
  1. CARBOPLATIN [Suspect]
     Active Substance: CARBOPLATIN
     Dates: end: 20241015
  2. PACLITAXEL [Suspect]
     Active Substance: PACLITAXEL
     Dates: end: 20241015

REACTIONS (7)
  - Dyspnoea [None]
  - Sinusitis [None]
  - Therapeutic product effect decreased [None]
  - Joint injury [None]
  - Fall [None]
  - Hip fracture [None]
  - Femoral neck fracture [None]

NARRATIVE: CASE EVENT DATE: 20241021
